FAERS Safety Report 21128464 (Version 2)
Quarter: 2022Q3

REPORT INFORMATION
  Report Type: Spontaneous
  Country: US (occurrence: US)
  Receive Date: 20220725
  Receipt Date: 20220802
  Transmission Date: 20221027
  Serious: Yes (Other)
  Sender: FDA-Public Use
  Company Number: US-Calliditas-2022CAL00226

PATIENT
  Age: 63 Year
  Sex: Female

DRUGS (1)
  1. TARPEYO [Suspect]
     Active Substance: BUDESONIDE
     Indication: IgA nephropathy
     Dosage: 16 MG (4 MG CAPSULES) DAILY
     Dates: start: 20220528

REACTIONS (5)
  - Blood pressure increased [Unknown]
  - Blood glucose increased [Unknown]
  - COVID-19 [Unknown]
  - Drug ineffective [Unknown]
  - Diabetes mellitus [Unknown]
